FAERS Safety Report 7918358-5 (Version None)
Quarter: 2011Q4

REPORT INFORMATION
  Report Type: 
  Country: None (occurrence: None)
  Receive Date: 20111116
  Receipt Date: 20111110
  Transmission Date: 20120403
  Serious: No
  Sender: FDA-Public Use
  Company Number: CA-ELI_LILLY_AND_COMPANY-CA201111003410

PATIENT
  Age: 49 Year
  Sex: Male

DRUGS (2)
  1. CIALIS [Suspect]
     Indication: ERECTILE DYSFUNCTION
     Dosage: 20 MG, UNK
     Dates: start: 20090101
  2. CIALIS [Suspect]
     Dosage: 10 MG, UNK

REACTIONS (3)
  - RASH [None]
  - VISION BLURRED [None]
  - INTENTIONAL DRUG MISUSE [None]
